FAERS Safety Report 9819171 (Version 3)
Quarter: 2014Q2

REPORT INFORMATION
  Report Type: Spontaneous
  Country: US (occurrence: US)
  Receive Date: 20140115
  Receipt Date: 20140401
  Transmission Date: 20141212
  Serious: Yes (Hospitalization, Other)
  Sender: FDA-Public Use
  Company Number: US-PFIZER INC-2014010108

PATIENT
  Age: 53 Year
  Sex: Male
  Weight: 73.92 kg

DRUGS (2)
  1. GABAPENTIN [Suspect]
     Indication: NEUROPATHY PERIPHERAL
     Dosage: UNK
  2. LYRICA [Suspect]
     Indication: NEUROPATHY PERIPHERAL
     Dosage: TWO 50MG IN THE MORNING, ONE 50MG IN THE EARLY AFTERNOON AND TWO 50MG IN THE EVENING, 3X/DAY
     Route: 048
     Dates: start: 201307

REACTIONS (4)
  - Hernia [Unknown]
  - Gallbladder disorder [Unknown]
  - Hepatitis B [Unknown]
  - Drug ineffective [Unknown]
